FAERS Safety Report 9345947 (Version 1)
Quarter: 2013Q2

REPORT INFORMATION
  Report Type: Spontaneous
  Country: US (occurrence: US)
  Receive Date: 20130613
  Receipt Date: 20130613
  Transmission Date: 20140414
  Serious: Yes (Other)
  Sender: FDA-Public Use
  Company Number: US-UCBSA-087837

PATIENT
  Sex: Male

DRUGS (2)
  1. KEPPRA [Suspect]
     Dosage: UNKNOWN DOSE
  2. NO CONCOMITANT MEDICATION [Concomitant]

REACTIONS (1)
  - Drug-induced liver injury [Unknown]
